FAERS Safety Report 14593598 (Version 2)
Quarter: 2020Q3

REPORT INFORMATION
  Report Type: Report from Study
  Country: JP (occurrence: JP)
  Receive Date: 20180302
  Receipt Date: 20180309
  Transmission Date: 20201104
  Serious: Yes (Death, Life-Threatening, Hospitalization)
  Sender: FDA-Public Use
  Company Number: JP-JNJFOC-20171113857

PATIENT
  Age: 79 Year
  Sex: Male
  Weight: 48.8 kg

DRUGS (34)
  1. AMBROXOL HYDROCHLORIDE [Concomitant]
     Active Substance: AMBROXOL HYDROCHLORIDE
     Indication: EMPHYSEMA
     Route: 048
     Dates: start: 20171020
  2. ENSURE [Concomitant]
     Active Substance: AMINO ACIDS\DEXTROSE\ELECTROLYTES NOS\SOYBEAN OIL\VITAMINS
     Indication: DECREASED APPETITE
     Route: 048
     Dates: start: 20171024, end: 20171103
  3. MAGNESIUM OXIDE. [Concomitant]
     Active Substance: MAGNESIUM OXIDE
     Indication: CONSTIPATION
     Route: 048
     Dates: end: 20171120
  4. SOLACET F [Concomitant]
     Indication: FLUID REPLACEMENT
     Route: 042
     Dates: start: 20171105, end: 20171105
  5. SOLDEM 3AG [Concomitant]
     Indication: FLUID REPLACEMENT
     Route: 042
     Dates: start: 20171114, end: 20171120
  6. NAUZELIN [Concomitant]
     Active Substance: DOMPERIDONE
     Indication: NAUSEA
     Route: 054
     Dates: start: 20171107, end: 20171107
  7. SALIVEHT [Concomitant]
     Indication: DRY MOUTH
     Route: 055
     Dates: start: 20171115, end: 20171116
  8. LACTEC [Concomitant]
     Active Substance: CALCIUM CHLORIDE ANHYDROUS\POTASSIUM CHLORIDE\SODIUM CHLORIDE\SODIUM LACTATE
     Indication: FLUID REPLACEMENT
     Route: 042
     Dates: start: 20171119, end: 20171119
  9. CALONAL [Concomitant]
     Active Substance: ACETAMINOPHEN
     Indication: BONE PAIN
     Route: 048
     Dates: start: 20171104, end: 20171120
  10. CELECOX [Concomitant]
     Active Substance: CELECOXIB
     Indication: BONE PAIN
     Route: 048
     Dates: start: 20171018, end: 20171104
  11. MYSLEE [Concomitant]
     Active Substance: ZOLPIDEM TARTRATE
     Indication: INSOMNIA
     Route: 048
     Dates: start: 20161205, end: 20171105
  12. SOLDEM 3AG [Concomitant]
     Indication: FLUID REPLACEMENT
     Route: 042
     Dates: start: 20171105, end: 20171105
  13. SENNOSIDE [Concomitant]
     Active Substance: SENNOSIDES
     Indication: CONSTIPATION
     Route: 048
     Dates: start: 20171115, end: 20171117
  14. SOLACET F [Concomitant]
     Indication: FLUID REPLACEMENT
     Route: 042
     Dates: start: 20171104, end: 20171104
  15. MORPHINE HYDROCHLORIDE [Concomitant]
     Active Substance: MORPHINE HYDROCHLORIDE
     Indication: DYSPNOEA
     Route: 042
     Dates: start: 20171119, end: 20171120
  16. ADOFEED [Concomitant]
     Active Substance: FLURBIPROFEN
     Indication: BONE PAIN
     Route: 062
     Dates: start: 20171117, end: 20171118
  17. LEVOFLOXACIN. [Concomitant]
     Active Substance: LEVOFLOXACIN
     Indication: NASOPHARYNGITIS
     Route: 048
     Dates: start: 20170618
  18. URIEF [Concomitant]
     Active Substance: SILODOSIN
     Indication: POLLAKIURIA
     Route: 048
     Dates: start: 20161206, end: 20171120
  19. BAKUMONDOTO [Concomitant]
     Active Substance: HERBALS
     Indication: RESPIRATORY TRACT CONGESTION
     Route: 048
     Dates: start: 20170125, end: 20171120
  20. DOMPERIDONE [Concomitant]
     Active Substance: DOMPERIDONE
     Indication: DECREASED APPETITE
     Route: 048
     Dates: start: 20171024, end: 20171120
  21. SULBACILLIN [Concomitant]
     Active Substance: AMPICILLIN SODIUM\SULBACTAM SODIUM
     Indication: PNEUMONIA
     Route: 042
     Dates: start: 20171105, end: 20171106
  22. ACETAMINOPHEN. [Concomitant]
     Active Substance: ACETAMINOPHEN
     Indication: BONE PAIN
     Route: 065
     Dates: start: 20171114, end: 20171119
  23. JNJ?56021927 [Suspect]
     Active Substance: APALUTAMIDE
     Indication: PROSTATE CANCER METASTATIC
     Route: 048
     Dates: start: 20161116, end: 20171030
  24. SULBACILLIN [Concomitant]
     Active Substance: AMPICILLIN SODIUM\SULBACTAM SODIUM
     Indication: PNEUMONIA
     Route: 042
     Dates: start: 20171104, end: 20171104
  25. PRIMPERAN [Concomitant]
     Active Substance: METOCLOPRAMIDE HYDROCHLORIDE
     Indication: NAUSEA
     Route: 042
     Dates: start: 20171110, end: 20171120
  26. TELEMINSOFT [Concomitant]
     Active Substance: BISACODYL
     Indication: CONSTIPATION
     Route: 054
     Dates: start: 20171118, end: 20171118
  27. ULTIBRO [Concomitant]
     Active Substance: GLYCOPYRRONIUM\INDACATEROL
     Indication: EMPHYSEMA
     Route: 055
     Dates: end: 20171120
  28. SULBACILLIN [Concomitant]
     Active Substance: AMPICILLIN SODIUM\SULBACTAM SODIUM
     Indication: PNEUMONIA
     Route: 042
     Dates: start: 20171120, end: 20171120
  29. SOLDEM 3AG [Concomitant]
     Indication: FLUID REPLACEMENT
     Route: 042
     Dates: start: 20171104, end: 20171104
  30. METOCLOPRAMIDE HYDROCHLORIDE. [Concomitant]
     Active Substance: METOCLOPRAMIDE HYDROCHLORIDE
     Indication: NAUSEA
     Route: 042
     Dates: start: 20171104, end: 20171104
  31. SODIUM HYALURONATE [Concomitant]
     Active Substance: HYALURONATE SODIUM
     Indication: DRY EYE
     Route: 047
     Dates: start: 20161111, end: 20171120
  32. NERIPROCT [Concomitant]
     Active Substance: DIFLUCORTOLONE VALERATE\LIDOCAINE
     Indication: HAEMORRHOIDS
     Route: 054
     Dates: end: 20171120
  33. AMBROXOL HYDROCHLORIDE [Concomitant]
     Active Substance: AMBROXOL HYDROCHLORIDE
     Indication: EMPHYSEMA
     Route: 048
     Dates: start: 20171020, end: 20171120
  34. TRAZODONE HYDROCHLORIDE. [Concomitant]
     Active Substance: TRAZODONE HYDROCHLORIDE
     Indication: INSOMNIA
     Route: 048
     Dates: start: 20171106, end: 20171119

REACTIONS (2)
  - Suicide attempt [Not Recovered/Not Resolved]
  - Pneumonia [Not Recovered/Not Resolved]

NARRATIVE: CASE EVENT DATE: 20171104
